FAERS Safety Report 5085173-2 (Version None)
Quarter: 2006Q3

REPORT INFORMATION
  Report Type: 
  Country: None (occurrence: None)
  Receive Date: 20060817
  Receipt Date: 20060808
  Transmission Date: 20061208
  Serious: Yes (Hospitalization)
  Sender: FDA-Public Use
  Company Number: 2006BI009493

PATIENT
  Age: 38 Year
  Sex: Male

DRUGS (4)
  1. NATALIZUMAB [Suspect]
     Indication: MULTIPLE SCLEROSIS
     Dosage: 300 MG;QM;IV
     Route: 042
     Dates: start: 20050114, end: 20050201
  2. BACLOFEN [Concomitant]
  3. CELEXA [Concomitant]
  4. PROVIGIL [Concomitant]

REACTIONS (9)
  - ASTHENIA [None]
  - DEEP VEIN THROMBOSIS [None]
  - HALLUCINATION [None]
  - LETHARGY [None]
  - MEMORY IMPAIRMENT [None]
  - MONOPLEGIA [None]
  - MOVEMENT DISORDER [None]
  - MULTIPLE SCLEROSIS [None]
  - PYREXIA [None]
